FAERS Safety Report 7094255-5 (Version None)
Quarter: 2010Q4

REPORT INFORMATION
  Report Type: 
  Country: None (occurrence: None)
  Receive Date: 20101110
  Receipt Date: 20101104
  Transmission Date: 20110411
  Serious: Yes (Other)
  Sender: FDA-Public Use
  Company Number: JP-PFIZER INC-2010132813

PATIENT
  Age: 64 Year
  Sex: Male

DRUGS (8)
  1. LYRICA [Suspect]
     Dosage: 75 MG, 2X/DAY
     Route: 048
     Dates: start: 20101004
  2. LYRICA [Suspect]
     Dosage: 75 MG, 3X/DAY
     Route: 048
     Dates: start: 20101008, end: 20101026
  3. MORPHINE SULFATE [Concomitant]
  4. LOXONIN [Concomitant]
  5. CALONAL [Concomitant]
  6. BETAMETHASONE [Concomitant]
  7. PARIET [Concomitant]
  8. MAGNESIUM OXIDE [Concomitant]

REACTIONS (4)
  - CEREBROVASCULAR DISORDER [None]
  - DIZZINESS [None]
  - GENERAL PHYSICAL HEALTH DETERIORATION [None]
  - HYPOAESTHESIA ORAL [None]
